FAERS Safety Report 6994677 (Version 4)
Quarter: 2012Q4

REPORT INFORMATION
  Report Type: 
  Country: CA (occurrence: CA)
  Receive Date: 20090514
  Receipt Date: 20121031
  Transmission Date: 20130627
  Serious: Yes (Other)
  Sender: FDA-Public Use
  Company Number: PHHY2009CA15586

PATIENT
  Sex: Female

DRUGS (2)
  1. SANDOSTATIN LAR [Suspect]
     Indication: PANCREATIC NEUROENDOCRINE TUMOUR
     Dosage: 30 mg, QMO
     Route: 030
     Dates: start: 20090417
  2. LEVOTHYROXINE [Concomitant]
     Indication: THYROID DISORDER

REACTIONS (12)
  - Cerebrovascular accident [Unknown]
  - Dysarthria [Unknown]
  - Muscle rigidity [Unknown]
  - Headache [Unknown]
  - Dizziness [Unknown]
  - Fatigue [Unknown]
  - Muscle tightness [Unknown]
  - Joint swelling [Unknown]
  - Hair colour changes [Unknown]
  - Muscle spasms [Unknown]
  - Flatulence [Unknown]
  - Abdominal pain [Unknown]
